FAERS Safety Report 24289626 (Version 1)
Quarter: 2024Q3

REPORT INFORMATION
  Report Type: Spontaneous
  Country: GB (occurrence: GB)
  Receive Date: 20240906
  Receipt Date: 20240906
  Transmission Date: 20241017
  Serious: Yes (Other)
  Sender: BOEHRINGER INGELHEIM
  Company Number: GB-MHRA-TPP22453104C1769164YC1725534323042

PATIENT
  Age: 79 Year
  Sex: Male
  Weight: 96 kg

DRUGS (13)
  1. EMPAGLIFLOZIN [Suspect]
     Active Substance: EMPAGLIFLOZIN
     Indication: Ill-defined disorder
     Dosage: FORM OF ADMIN: TPP YC
     Dates: start: 20240722, end: 20240823
  2. EMPAGLIFLOZIN [Suspect]
     Active Substance: EMPAGLIFLOZIN
     Dosage: FORM STRENGTH: 10 MILLIGRAM
     Dates: start: 20240905
  3. FOLIC ACID [Concomitant]
     Active Substance: FOLIC ACID
     Indication: Ill-defined disorder
     Dosage: TAKE ONE TABLET ONCE A DAY?FORM OF ADMIN: TPP YC
     Dates: start: 20240722
  4. ALFUZOSIN [Concomitant]
     Active Substance: ALFUZOSIN
     Indication: Ill-defined disorder
     Dosage: FORM OF ADMIN: TPP YC
     Dates: start: 20230907
  5. ATORVASTATIN [Concomitant]
     Active Substance: ATORVASTATIN
     Indication: Ill-defined disorder
     Dosage: FORM OF ADMIN: TPP YC
     Dates: start: 20230907
  6. CLOBETASONE BUTYRATE [Concomitant]
     Active Substance: CLOBETASONE BUTYRATE
     Indication: Ill-defined disorder
     Dosage: APPLY 1-2 TIMES/DAY AS REQD?FORM OF ADMIN: TPP YC
     Dates: start: 20230907
  7. BUTYLSCOPOLAMINE BROMIDE [Concomitant]
     Active Substance: BUTYLSCOPOLAMINE BROMIDE
     Indication: Ill-defined disorder
     Dosage: TAKE UP TO TWO 4 TIMES/DAY?FORM OF ADMIN: TPP YC
     Dates: start: 20230907
  8. METFORMIN [Concomitant]
     Active Substance: METFORMIN HYDROCHLORIDE
     Indication: Ill-defined disorder
     Dosage: ONE TABLET TO BE TAKEN ONCE A DAY WITH FOOD?FORM OF ADMIN: TPP YC
     Dates: start: 20230907, end: 20240722
  9. OMEPRAZOLE [Concomitant]
     Active Substance: OMEPRAZOLE
     Indication: Ill-defined disorder
     Dosage: TAKE ONE CAPSULE DAILY AS DIRECTED FOR INDIGEST...?FORM OF ADMIN: TPP YC - PLEASE RECLASSIFY
     Dates: start: 20230907
  10. PEPPERMINT OIL [Concomitant]
     Active Substance: PEPPERMINT OIL
     Indication: Ill-defined disorder
     Dosage: TAKE ONE CAPSULE THREE TIMES A DAY, PREFERABLY ...?FORM OF ADMIN: TPP YC - PLEASE RECLASSIFY
     Dates: start: 20230907, end: 20240722
  11. SILDENAFIL [Concomitant]
     Active Substance: SILDENAFIL
     Indication: Ill-defined disorder
     Dosage: USE AS DIRECTED?FORM OF ADMIN: TPP YC - PLEASE RECLASSIFY
     Dates: start: 20230907
  12. AMLODIPINE [Concomitant]
     Active Substance: AMLODIPINE BESYLATE
     Indication: Ill-defined disorder
     Dosage: TAKE ONE TABLET ONCE A DAY?FORM OF ADMIN: TPP YC - PLEASE RECLASSIFY
     Dates: start: 20240109
  13. MOMETASONE [Concomitant]
     Active Substance: MOMETASONE
     Indication: Ill-defined disorder
     Dosage: (AMBER 3 AS PER APC TREATMENT PATHWAY)  TWO SPR...?FORM OF ADMIN: TPP YC - PLEASE RECLASSIFY
     Dates: start: 20240722

REACTIONS (2)
  - Palpitations [Recovered/Resolved]
  - Dyspnoea [Recovered/Resolved]

NARRATIVE: CASE EVENT DATE: 20240725
